FAERS Safety Report 23211230 (Version 1)
Quarter: 2023Q4

REPORT INFORMATION
  Report Type: Spontaneous
  Country: US (occurrence: None)
  Receive Date: 20231120
  Receipt Date: 20231120
  Transmission Date: 20240110
  Serious: Yes (Other)
  Sender: FDA-Public Use
  Company Number: None

PATIENT
  Age: 52 Year
  Sex: Female
  Weight: 52.2 kg

DRUGS (6)
  1. RECLAST [Suspect]
     Active Substance: ZOLEDRONIC ACID
     Indication: Osteoporosis
     Dosage: OTHER QUANTITY : 1 INFUSION;?OTHER FREQUENCY : YEARLY;?OTHER ROUTE : INFUSION;?
     Route: 050
  2. PREDNISONE [Concomitant]
     Active Substance: PREDNISONE
  3. bone strength vitamins [Concomitant]
  4. priobiotics [Concomitant]
  5. HERBALS [Concomitant]
     Active Substance: HERBALS
  6. LORATADINE [Concomitant]
     Active Substance: LORATADINE

REACTIONS (11)
  - Headache [None]
  - Myalgia [None]
  - Arthralgia [None]
  - Eye swelling [None]
  - Ocular hyperaemia [None]
  - Eye pain [None]
  - Eye inflammation [None]
  - Vision blurred [None]
  - Dark circles under eyes [None]
  - Pallor [None]
  - Hypersensitivity [None]

NARRATIVE: CASE EVENT DATE: 20231107
